FAERS Safety Report 23999957 (Version 1)
Quarter: 2024Q2

REPORT INFORMATION
  Report Type: Spontaneous
  Country: US (occurrence: US)
  Receive Date: 20240621
  Receipt Date: 20240621
  Transmission Date: 20240715
  Serious: No
  Sender: FDA-Public Use
  Company Number: US-LUPIN PHARMACEUTICALS INC.-2024-05190

PATIENT

DRUGS (1)
  1. CEFDINIR [Suspect]
     Active Substance: CEFDINIR
     Indication: Urinary tract infection
     Dosage: 9 MILLILITER, QD, 9ML ONCE DAILY BY MOUTH
     Route: 048
     Dates: start: 20231208, end: 20231217

REACTIONS (3)
  - Recalled product administered [Unknown]
  - Product contamination physical [Unknown]
  - No adverse event [Unknown]
